FAERS Safety Report 9258600 (Version 1)
Quarter: 2013Q1

REPORT INFORMATION
  Report Type: Spontaneous
  Country: US (occurrence: None)
  Receive Date: 20121212
  Receipt Date: 20121212
  Transmission Date: 20140127
  Serious: No
  Sender: FDA-Public Use
  Company Number: 1211USA005473

PATIENT
  Age: 49 Year
  Sex: Female

DRUGS (3)
  1. PEGINTRON [Suspect]
     Indication: HEPATITIS C
     Dates: start: 20120921
  2. VICTRELIS [Suspect]
     Indication: HEPATITIS C
  3. RIBAVIRIN [Suspect]
     Indication: HEPATITIS C
     Dates: start: 20120921

REACTIONS (6)
  - Pain [None]
  - Fall [None]
  - Contusion [None]
  - Immune system disorder [None]
  - Red blood cell count decreased [None]
  - Balance disorder [None]
